FAERS Safety Report 11538317 (Version 3)
Quarter: 2015Q4

REPORT INFORMATION
  Report Type: Report from Study
  Country: CH (occurrence: CH)
  Receive Date: 20150922
  Receipt Date: 20151015
  Transmission Date: 20160304
  Serious: Yes (Hospitalization)
  Sender: FDA-Public Use
  Company Number: CH-ABBVIE-15P-151-1466061-00

PATIENT
  Sex: Female

DRUGS (2)
  1. DUODOPA [Suspect]
     Active Substance: CARBIDOPA\LEVODOPA
     Indication: PARKINSON^S DISEASE
     Dosage: CONT RATE AM:6ML/H, CONT RATEPM: 4ML
     Route: 050
     Dates: start: 20150811
  2. MOTILIUM [Concomitant]
     Active Substance: DOMPERIDONE
     Indication: PRODUCT USED FOR UNKNOWN INDICATION

REACTIONS (8)
  - Tremor [Recovering/Resolving]
  - Nausea [Not Recovered/Not Resolved]
  - Device dislocation [Recovered/Resolved]
  - Somnolence [Unknown]
  - Decreased appetite [Unknown]
  - Confusional state [Unknown]
  - Fluid intake reduced [Unknown]
  - Nausea [Unknown]
